FAERS Safety Report 15146448 (Version 1)
Quarter: 2018Q3

REPORT INFORMATION
  Report Type: Spontaneous
  Country: DE (occurrence: DE)
  Receive Date: 20180715
  Receipt Date: 20180715
  Transmission Date: 20181010
  Serious: Yes (Other)
  Sender: FDA-Public Use
  Company Number: PHHY2009DE075282

PATIENT
  Age: 74 Year
  Sex: Female

DRUGS (3)
  1. PACLITAXEL. [Suspect]
     Active Substance: PACLITAXEL
     Indication: BREAST CANCER
     Route: 065
  2. CAPECITABINE. [Suspect]
     Active Substance: CAPECITABINE
     Indication: BREAST CANCER
     Route: 065
  3. BEVACIZUMAB. [Suspect]
     Active Substance: BEVACIZUMAB
     Indication: BREAST CANCER
     Dosage: 760 MG, UNK
     Route: 065

REACTIONS (7)
  - Malaise [Unknown]
  - General physical health deterioration [Unknown]
  - Hypertension [Unknown]
  - Renal impairment [Unknown]
  - Fatigue [Unknown]
  - Infection [Unknown]
  - Drug intolerance [Unknown]

NARRATIVE: CASE EVENT DATE: 20100223
